FAERS Safety Report 17600672 (Version 1)
Quarter: 2020Q1

REPORT INFORMATION
  Report Type: Spontaneous
  Country: US (occurrence: US)
  Receive Date: 20200330
  Receipt Date: 20200330
  Transmission Date: 20200409
  Serious: Yes (Hospitalization, Other)
  Sender: FDA-Public Use
  Company Number: US-AMGEN-USASP2020047445

PATIENT
  Age: 32 Year
  Sex: Female

DRUGS (9)
  1. 5-FU [FLUOROURACIL] [Suspect]
     Active Substance: FLUOROURACIL
     Indication: COLON CANCER METASTATIC
     Dosage: 400 MILLIGRAM/SQ. METER
     Route: 065
  2. BEVACIZUMAB. [Suspect]
     Active Substance: BEVACIZUMAB
     Dosage: UNK MILLIGRAM/KILOGRAM,(RESTARTED DOSE)
     Route: 065
  3. CAPECITABINE. [Concomitant]
     Active Substance: CAPECITABINE
     Indication: COLON CANCER METASTATIC
     Dosage: 1000 MILLIGRAM/SQ. METER
  4. LACTULOSE. [Concomitant]
     Active Substance: LACTULOSE
     Dosage: UNK
  5. BEVACIZUMAB. [Suspect]
     Active Substance: BEVACIZUMAB
     Indication: COLON CANCER METASTATIC
     Dosage: 5 MILLIGRAM/KILOGRAM, QD (ON DAY 1)
     Route: 065
  6. OXALIPLATIN. [Suspect]
     Active Substance: OXALIPLATIN
     Indication: COLON CANCER METASTATIC
     Dosage: 85 MILLIGRAM/SQ. METER
     Route: 065
  7. LACTULOSE. [Concomitant]
     Active Substance: LACTULOSE
     Dosage: UNK
  8. FOLINIC ACID [Suspect]
     Active Substance: LEUCOVORIN
     Indication: COLON CANCER METASTATIC
     Dosage: 400 MILLIGRAM/SQ. METER (DAY 1)
     Route: 065
  9. 5-FU [FLUOROURACIL] [Suspect]
     Active Substance: FLUOROURACIL
     Dosage: 2400 MILLIGRAM/SQ. METER (46 HOURS)
     Route: 065

REACTIONS (5)
  - Acute kidney injury [Recovered/Resolved]
  - Dehydration [Unknown]
  - Lactic acidosis [Recovered/Resolved]
  - Vomiting [Unknown]
  - Nausea [Unknown]
